FAERS Safety Report 5261390-3 (Version None)
Quarter: 2007Q1

REPORT INFORMATION
  Report Type: 
  Country: None (occurrence: None)
  Receive Date: 20070307
  Receipt Date: 20070227
  Transmission Date: 20070707
  Serious: Yes (Hospitalization)
  Sender: FDA-Public Use
  Company Number: 236913

PATIENT
  Age: 57 Year
  Sex: Female

DRUGS (6)
  1. XOLAIR [Suspect]
     Indication: ASTHMA
     Dosage: 300, Q2W, SUBCUTANEOUS
     Route: 058
     Dates: start: 20040816
  2. FORADIL [Concomitant]
  3. PULMICORT RESPULES [Concomitant]
  4. SINGULAIR [Concomitant]
  5. ALBUTEROL (ALBUTEROL/ALBUTEROL SULFATE) [Concomitant]
  6. LEVAQUIN [Concomitant]

REACTIONS (2)
  - CONVULSION [None]
  - MENINGITIS BACTERIAL [None]
